FAERS Safety Report 4595069-8 (Version None)
Quarter: 2005Q1

REPORT INFORMATION
  Report Type: 
  Country: None (occurrence: None)
  Receive Date: 20050224
  Receipt Date: 20050218
  Transmission Date: 20050727
  Serious: Yes (Hospitalization)
  Sender: FDA-Public Use
  Company Number: 004171

PATIENT
  Age: 49 Year
  Sex: Male
  Weight: 79.8 kg

DRUGS (2)
  1. METHYLPREDNISOLONE [Suspect]
     Indication: URTICARIA
     Dosage: 4.00 MG, ORAL
     Route: 048
     Dates: start: 20050211, end: 20050212
  2. DIGOXIN [Suspect]
     Dosage: QD

REACTIONS (5)
  - BODY TEMPERATURE DECREASED [None]
  - DIZZINESS POSTURAL [None]
  - HEADACHE [None]
  - HEART RATE INCREASED [None]
  - PERIPHERAL COLDNESS [None]
